FAERS Safety Report 9348757 (Version 1)
Quarter: 2013Q2

REPORT INFORMATION
  Report Type: Spontaneous
  Country: US (occurrence: US)
  Receive Date: 20130614
  Receipt Date: 20130614
  Transmission Date: 20140414
  Serious: Yes (Hospitalization)
  Sender: FDA-Public Use
  Company Number: US-BAYER-2013-071840

PATIENT
  Age: 30 Year
  Sex: Female
  Weight: 87.08 kg

DRUGS (7)
  1. YASMIN [Suspect]
  2. PREDNISONE [Concomitant]
     Dosage: 30 MG, QD
     Route: 048
     Dates: start: 20070103
  3. IMODIUM [Concomitant]
     Dosage: 1 TAB, TID
     Route: 048
     Dates: start: 20070103
  4. OXYCODONE [Concomitant]
     Dosage: UNK
     Dates: start: 20070103
  5. METOCLOPRAMIDE [Concomitant]
     Indication: NAUSEA
     Dosage: 10 MG, TID
     Route: 048
     Dates: start: 20070103
  6. CALCIUM [Concomitant]
     Dosage: UNK
     Dates: start: 20070103
  7. VITAMIN D [Concomitant]
     Dosage: UNK
     Dates: start: 20070103

REACTIONS (3)
  - Deep vein thrombosis [None]
  - Thrombophlebitis superficial [None]
  - Pelvic venous thrombosis [None]
